FAERS Safety Report 20013719 (Version 1)
Quarter: 2021Q4

REPORT INFORMATION
  Report Type: Spontaneous
  Country: US (occurrence: US)
  Receive Date: 20211029
  Receipt Date: 20211029
  Transmission Date: 20220304
  Serious: Yes (Hospitalization, Other)
  Sender: FDA-Public Use
  Company Number: US-GLAXOSMITHKLINE-USCH2021AMR075232

PATIENT
  Age: 64 Year
  Sex: Female
  Weight: 87.3 kg

DRUGS (5)
  1. TUMS [Suspect]
     Active Substance: CALCIUM CARBONATE
     Indication: Product used for unknown indication
     Dosage: UNK
  2. MACITENTAN [Suspect]
     Active Substance: MACITENTAN
     Indication: Pulmonary hypertension
     Dosage: 10 MG, 1D
     Route: 048
  3. MACITENTAN [Suspect]
     Active Substance: MACITENTAN
     Dosage: 10 UNK
  4. DUONEB [Suspect]
     Active Substance: ALBUTEROL SULFATE\IPRATROPIUM BROMIDE
     Indication: Product used for unknown indication
     Dosage: UNK
  5. ELIQUIS [Concomitant]
     Active Substance: APIXABAN
     Indication: Product used for unknown indication

REACTIONS (19)
  - Pneumonia [Unknown]
  - Blood glucose increased [Unknown]
  - Hypotension [Not Recovered/Not Resolved]
  - Hypervolaemia [Not Recovered/Not Resolved]
  - Dizziness [Unknown]
  - Dyspnoea [Not Recovered/Not Resolved]
  - Asthma [Unknown]
  - Blood glucose fluctuation [Unknown]
  - Fall [Unknown]
  - Contusion [Unknown]
  - Chest pain [Unknown]
  - Blood pressure fluctuation [Unknown]
  - Pruritus [Unknown]
  - Paraesthesia [Unknown]
  - Palpitations [Unknown]
  - Hypercalcaemia [Unknown]
  - Balance disorder [Unknown]
  - Illness [Unknown]
  - Weight increased [Unknown]

NARRATIVE: CASE EVENT DATE: 20210604
